FAERS Safety Report 5373827-X (Version None)
Quarter: 2007Q2

REPORT INFORMATION
  Report Type: 
  Country: None (occurrence: None)
  Receive Date: 20070628
  Receipt Date: 20070625
  Transmission Date: 20071010
  Serious: Yes (Death, Life-Threatening, Hospitalization)
  Sender: FDA-Public Use
  Company Number: US-SANOFI-SYNTHELABO-F01200700103

PATIENT
  Sex: Female
  Weight: 50.9 kg

DRUGS (22)
  1. TYLENOL [Concomitant]
     Indication: PAIN
     Dates: start: 20051201
  2. TYLENOL [Concomitant]
     Indication: PYREXIA
     Dates: start: 20051201
  3. BEVACIZUMAB [Suspect]
     Route: 042
     Dates: start: 20070122, end: 20070122
  4. LEUCOVORIN CALCIUM [Suspect]
     Route: 042
     Dates: start: 20051205, end: 20070123
  5. FLUOROURACIL [Suspect]
     Route: 042
     Dates: start: 20070122, end: 20070123
  6. CALCIUM/VITAMIN D [Concomitant]
     Dates: start: 19940101
  7. FLAXSEED OIL [Concomitant]
     Dates: start: 20020101
  8. VITAMIN E [Concomitant]
     Dates: start: 20050501
  9. NATURE MADE MULTIVITAMIN [Concomitant]
     Dates: start: 20061218
  10. HYDROCHLOROTHIAZIDE [Concomitant]
     Indication: HYPERTENSION
     Dates: start: 20061218
  11. PREVACID [Concomitant]
     Indication: STOMACH DISCOMFORT
     Dates: start: 20061002
  12. ATENOLOL [Concomitant]
     Indication: HYPERTENSION
     Dates: start: 20060817
  13. ATACAND [Concomitant]
     Indication: HYPERTENSION
     Dates: start: 20060601
  14. CA/MG OR PLACEBO [Suspect]
     Route: 065
     Dates: start: 20070122, end: 20070122
  15. ZOFRAN [Concomitant]
     Indication: NAUSEA
     Dates: start: 20040101
  16. LEVOXYL [Concomitant]
     Indication: HYPOTHYROIDISM
     Dates: start: 20040901
  17. ASPIRIN [Concomitant]
     Indication: CARDIOVASCULAR EVENT PROPHYLAXIS
     Dates: start: 20000101
  18. OXALIPLATIN [Suspect]
     Indication: COLORECTAL CANCER METASTATIC
     Route: 042
     Dates: start: 20070122, end: 20070122
  19. COUMADIN [Concomitant]
     Indication: PROPHYLAXIS
     Dates: start: 20070122, end: 20070124
  20. COUMADIN [Concomitant]
     Indication: COAGULOPATHY
     Dates: start: 20070122, end: 20070124
  21. COUMADIN [Concomitant]
     Dates: start: 20060601, end: 20070101
  22. COUMADIN [Concomitant]
     Dates: start: 20060601, end: 20070101

REACTIONS (1)
  - MYOCARDIAL INFARCTION [None]
